FAERS Safety Report 24685689 (Version 1)
Quarter: 2024Q4

REPORT INFORMATION
  Report Type: Spontaneous
  Country: US (occurrence: None)
  Receive Date: 20241127
  Receipt Date: 20241127
  Transmission Date: 20250115
  Serious: Yes (Hospitalization)
  Sender: Public
  Company Number: None

PATIENT
  Sex: Male

DRUGS (6)
  1. TADALAFIL [Suspect]
     Active Substance: TADALAFIL
     Indication: Pulmonary arterial hypertension
     Dosage: FREQUENCY : DAILY;?
     Route: 048
     Dates: start: 202209
  2. PREDNISONE [Suspect]
     Active Substance: PREDNISONE
  3. CARVEDILOL [Suspect]
     Active Substance: CARVEDILOL
  4. ESZOPICLONE [Suspect]
     Active Substance: ESZOPICLONE
  5. FUROSEMIDE [Suspect]
     Active Substance: FUROSEMIDE
  6. TREPROSTINIL DIOLAMINE [Suspect]
     Active Substance: TREPROSTINIL DIOLAMINE

REACTIONS (7)
  - Pneumonia [None]
  - Coccidioidomycosis [None]
  - Therapy interrupted [None]
  - Adverse drug reaction [None]
  - Mood altered [None]
  - Aggression [None]
  - Insomnia [None]
